FAERS Safety Report 4918082-7 (Version None)
Quarter: 2006Q1

REPORT INFORMATION
  Report Type: 
  Country: None (occurrence: None)
  Receive Date: 20060221
  Receipt Date: 20051011
  Transmission Date: 20060701
  Serious: Yes (Hospitalization, Other)
  Sender: FDA-Public Use
  Company Number: US-MERCK-0510USA06597

PATIENT
  Age: 53 Year
  Sex: Female
  Weight: 86 kg

DRUGS (3)
  1. VIOXX [Suspect]
     Indication: ARTHRITIS
     Route: 048
     Dates: start: 20010101, end: 20040101
  2. ESTRACE [Concomitant]
     Route: 065
     Dates: start: 19850101
  3. VALIUM [Concomitant]
     Indication: ANXIETY
     Route: 065
     Dates: start: 19900101

REACTIONS (23)
  - ABDOMINAL DISTENSION [None]
  - ABDOMINAL PAIN UPPER [None]
  - ACUTE SINUSITIS [None]
  - CEREBROVASCULAR ACCIDENT [None]
  - CHEST PAIN [None]
  - DEHYDRATION [None]
  - DYSPEPSIA [None]
  - FAECALOMA [None]
  - FLANK PAIN [None]
  - HAEMATURIA [None]
  - HEPATIC CYST [None]
  - HYPOALBUMINAEMIA [None]
  - HYPONATRAEMIA [None]
  - LEUKOPENIA [None]
  - MENTAL STATUS CHANGES [None]
  - METABOLIC ACIDOSIS [None]
  - PITUITARY TUMOUR BENIGN [None]
  - PROTEINURIA [None]
  - RENAL FAILURE [None]
  - RENAL FAILURE ACUTE [None]
  - RENAL FAILURE CHRONIC [None]
  - RESPIRATORY FAILURE [None]
  - TUMOUR MARKER INCREASED [None]
